FAERS Safety Report 9684126 (Version 1)
Quarter: 2013Q4

REPORT INFORMATION
  Report Type: Spontaneous
  Country: US (occurrence: None)
  Receive Date: 20131111
  Receipt Date: 20131111
  Transmission Date: 20140711
  Serious: Yes (Other)
  Sender: FDA-Public Use
  Company Number: None

PATIENT
  Age: 27 Year
  Sex: Female
  Weight: 63.5 kg

DRUGS (1)
  1. TINIDAZOLE 500 MG ROXANE LABS. [Suspect]
     Indication: VAGINITIS BACTERIAL
     Dosage: 4 PILLS WITH FOOD ONCE DAILY TAKEN BY MOUTH
     Route: 048
     Dates: start: 20131107, end: 20131108

REACTIONS (8)
  - Nausea [None]
  - Vomiting [None]
  - Abdominal discomfort [None]
  - Abdominal pain upper [None]
  - Abdominal pain upper [None]
  - Decreased appetite [None]
  - Diarrhoea [None]
  - Dizziness [None]
